FAERS Safety Report 25406319 (Version 1)
Quarter: 2025Q2

REPORT INFORMATION
  Report Type: Spontaneous
  Country: PL (occurrence: PL)
  Receive Date: 20250606
  Receipt Date: 20250606
  Transmission Date: 20250717
  Serious: Yes (Life-Threatening, Hospitalization, Other)
  Sender: MERCK SHARP & DOHME LLC
  Company Number: PL-009507513-2291079

PATIENT
  Age: 70 Year
  Sex: Male

DRUGS (1)
  1. KEYTRUDA [Suspect]
     Active Substance: PEMBROLIZUMAB
     Indication: Lung adenocarcinoma
     Dates: start: 202008, end: 202103

REACTIONS (8)
  - Acute kidney injury [Recovered/Resolved]
  - Interstitial lung abnormality [Recovered/Resolved]
  - General physical health deterioration [Recovered/Resolved]
  - Suspected COVID-19 [Recovered/Resolved]
  - Myocardial infarction [Unknown]
  - Prostatomegaly [Unknown]
  - Blood pressure decreased [Unknown]
  - Immune-mediated lung disease [Recovered/Resolved]

NARRATIVE: CASE EVENT DATE: 20210101
